FAERS Safety Report 9980099 (Version 1)
Quarter: 2014Q1

REPORT INFORMATION
  Report Type: Report from Study
  Country: US (occurrence: US)
  Receive Date: 20140307
  Receipt Date: 20140307
  Transmission Date: 20141002
  Serious: No
  Sender: FDA-Public Use
  Company Number: US-ABBVIE-13P-163-1174871-00

PATIENT
  Sex: Female
  Weight: 89.89 kg

DRUGS (17)
  1. HUMIRA [Suspect]
     Indication: RHEUMATOID ARTHRITIS
     Dates: start: 2005, end: 2012
  2. HUMIRA [Suspect]
     Indication: PSORIATIC ARTHROPATHY
     Dates: start: 20131114
  3. ENBREL [Suspect]
     Indication: RHEUMATOID ARTHRITIS
  4. BOTOX [Concomitant]
     Indication: MIGRAINE
     Route: 050
  5. PROPRANOLOL [Concomitant]
     Indication: HYPERTENSION
  6. PRILOSEC [Concomitant]
     Indication: GASTROOESOPHAGEAL REFLUX DISEASE
  7. ALBUTEROL [Concomitant]
     Indication: ASTHMA
  8. SINGULAIR [Concomitant]
     Indication: ASTHMA
  9. ADVAIR [Concomitant]
     Indication: ASTHMA
  10. PROAIR [Concomitant]
     Indication: ASTHMA
  11. BIPAP MACHINE [Concomitant]
     Indication: CHRONIC OBSTRUCTIVE PULMONARY DISEASE
  12. BIPAP MACHINE [Concomitant]
     Indication: SLEEP APNOEA SYNDROME
  13. HEPARIN [Concomitant]
     Indication: CYSTITIS INTERSTITIAL
  14. CALCIUM + VITAMIN D [Concomitant]
     Indication: PRODUCT USED FOR UNKNOWN INDICATION
  15. GABAPENTIN [Concomitant]
     Indication: PRODUCT USED FOR UNKNOWN INDICATION
  16. ROBAXIN [Concomitant]
     Indication: PRODUCT USED FOR UNKNOWN INDICATION
  17. IBUPROFEN [Concomitant]
     Indication: PRODUCT USED FOR UNKNOWN INDICATION

REACTIONS (7)
  - Joint stiffness [Not Recovered/Not Resolved]
  - Rheumatoid arthritis [Not Recovered/Not Resolved]
  - Arthralgia [Not Recovered/Not Resolved]
  - Joint swelling [Not Recovered/Not Resolved]
  - Drug ineffective [Unknown]
  - Rash pruritic [Unknown]
  - Angiolipoma [Unknown]
